FAERS Safety Report 15103308 (Version 2)
Quarter: 2019Q1

REPORT INFORMATION
  Report Type: Spontaneous
  Country: CA (occurrence: CA)
  Receive Date: 20180703
  Receipt Date: 20190315
  Transmission Date: 20190417
  Serious: Yes (Hospitalization, Other)
  Sender: FDA-Public Use
  Company Number: CA-MYLANLABS-2018M1049130

PATIENT
  Age: 11 Year
  Sex: Male

DRUGS (2)
  1. VALPROIC ACID. [Suspect]
     Active Substance: VALPROIC ACID
     Indication: GENERALISED TONIC-CLONIC SEIZURE
  2. VALPROIC ACID. [Suspect]
     Active Substance: VALPROIC ACID
     Indication: SEIZURE
     Dosage: 1000 MILLIGRAM
     Route: 048
     Dates: start: 1991, end: 199503

REACTIONS (7)
  - Vomiting [Unknown]
  - Steatorrhoea [Unknown]
  - Pancreatitis acute [Unknown]
  - Weight decreased [Unknown]
  - Nausea [Unknown]
  - Pancreatitis chronic [Unknown]
  - Abdominal pain [Recovered/Resolved]
